FAERS Safety Report 21315501 (Version 1)
Quarter: 2022Q3

REPORT INFORMATION
  Report Type: Spontaneous
  Country: US (occurrence: US)
  Receive Date: 20220909
  Receipt Date: 20220909
  Transmission Date: 20221026
  Serious: No
  Sender: FDA-Public Use
  Company Number: US-BAYER-2022A112914

PATIENT

DRUGS (1)
  1. ASTEPRO [Suspect]
     Active Substance: AZELASTINE HYDROCHLORIDE

REACTIONS (3)
  - Swelling face [Not Recovered/Not Resolved]
  - Nasal oedema [Not Recovered/Not Resolved]
  - Eye swelling [Not Recovered/Not Resolved]
